FAERS Safety Report 4644077-7 (Version None)
Quarter: 2005Q2

REPORT INFORMATION
  Report Type: 
  Country: None (occurrence: None)
  Receive Date: 20050425
  Receipt Date: 20050404
  Transmission Date: 20051028
  Serious: Yes (Life-Threatening, Other)
  Sender: FDA-Public Use
  Company Number: PHRM2005FR01219

PATIENT
  Age: 1 Day
  Sex: Female
  Weight: 3 kg

DRUGS (4)
  1. LESCOL [Suspect]
     Route: 064
  2. GLUCOPHAGE [Suspect]
     Route: 064
  3. DIO [Suspect]
     Route: 064
  4. COTAREG [Suspect]
     Route: 064

REACTIONS (23)
  - BLOOD CALCIUM INCREASED [None]
  - BLOOD CREATININE INCREASED [None]
  - BLOOD ELECTROLYTES ABNORMAL [None]
  - BLOOD PHOSPHORUS ABNORMAL [None]
  - BLOOD SODIUM DECREASED [None]
  - BLOOD UREA INCREASED [None]
  - CHEST X-RAY ABNORMAL [None]
  - CONGENITAL NEUROLOGICAL DISORDER [None]
  - CONGENITAL PULMONARY HYPERTENSION [None]
  - CYANOSIS NEONATAL [None]
  - DRUG EXPOSURE DURING PREGNANCY [None]
  - HYPERTONIA NEONATAL [None]
  - HYPERTROPHIC CARDIOMYOPATHY [None]
  - HYPOTONIA NEONATAL [None]
  - KIDNEY MALFORMATION [None]
  - NEONATAL HYPOXIA [None]
  - NEONATAL RESPIRATORY DISTRESS SYNDROME [None]
  - POOR SUCKING REFLEX [None]
  - PREMATURE BABY [None]
  - RENAL FAILURE NEONATAL [None]
  - RENAL TUBULAR DISORDER [None]
  - SOMNOLENCE NEONATAL [None]
  - VENTRICULAR HYPERTROPHY [None]
